FAERS Safety Report 9413225 (Version 1)
Quarter: 2013Q3

REPORT INFORMATION
  Report Type: Spontaneous
  Country: US (occurrence: US)
  Receive Date: 20130722
  Receipt Date: 20130722
  Transmission Date: 20140515
  Serious: Yes (Other)
  Sender: FDA-Public Use
  Company Number: US-TARO-2013P1012455

PATIENT
  Age: 72 Year
  Sex: Male
  Weight: 77.11 kg

DRUGS (5)
  1. PHENYTOIN SODIUM EXTENDED CAPSULES USP 100MG [Suspect]
     Route: 048
     Dates: start: 2001, end: 2013
  2. PHENYTOIN SODIUM EXTENDED CAPSULES USP 100MG [Suspect]
     Route: 048
     Dates: start: 20130709
  3. PHENYTOIN SODIUM EXTENDED CAPSULES USP 100MG [Suspect]
     Route: 048
     Dates: start: 2013, end: 20130709
  4. PHENYTOIN SODIUM EXTENDED CAPSULES USP 100MG [Suspect]
     Route: 048
     Dates: start: 20130709
  5. LISINOPRIL [Concomitant]
     Dates: start: 1993

REACTIONS (10)
  - Somnolence [Not Recovered/Not Resolved]
  - Gait disturbance [Not Recovered/Not Resolved]
  - Constipation [Recovering/Resolving]
  - Peripheral coldness [Not Recovered/Not Resolved]
  - Blood pressure decreased [Not Recovered/Not Resolved]
  - Abdominal discomfort [Not Recovered/Not Resolved]
  - Anticonvulsant drug level above therapeutic [Not Recovered/Not Resolved]
  - Contusion [Not Recovered/Not Resolved]
  - Product substitution issue [None]
  - Product quality issue [None]
